FAERS Safety Report 4676476-1 (Version None)
Quarter: 2005Q2

REPORT INFORMATION
  Report Type: 
  Country: None (occurrence: None)
  Receive Date: 20050527
  Receipt Date: 20050523
  Transmission Date: 20051028
  Serious: Yes (Other)
  Sender: FDA-Public Use
  Company Number: US-JNJFOC-20050406692

PATIENT
  Sex: Female
  Weight: 20.87 kg

DRUGS (3)
  1. CONCERTA [Suspect]
     Route: 049
     Dates: start: 20040722
  2. CONCERTA [Suspect]
     Route: 049
     Dates: start: 20040722
  3. CONCERTA [Suspect]
     Route: 049
     Dates: start: 20040722

REACTIONS (1)
  - HALLUCINATIONS, MIXED [None]
